FAERS Safety Report 21389157 (Version 2)
Quarter: 2023Q1

REPORT INFORMATION
  Report Type: Spontaneous
  Country: DE (occurrence: DE)
  Receive Date: 20220929
  Receipt Date: 20230126
  Transmission Date: 20230417
  Serious: Yes (Hospitalization)
  Sender: FDA-Public Use
  Company Number: DE-ADRED-04867-02

PATIENT
  Age: 70 Year
  Sex: Female
  Weight: 59 kg

DRUGS (14)
  1. GABAPENTIN [Suspect]
     Active Substance: GABAPENTIN
     Indication: Product used for unknown indication
     Dosage: IF NECESSARY
  2. SIMVASTATIN [Concomitant]
     Active Substance: SIMVASTATIN
     Indication: Product used for unknown indication
     Dosage: 1 DOSAGE FORMS DAILY; 40 MG, 0-0-1-0, UNIT DOSE : 1 DF , FREQUENCY : OD
  3. CINACALCET [Concomitant]
     Active Substance: CINACALCET
     Indication: Product used for unknown indication
     Dosage: 30 MG, FOUR TIMES A WEEK
  4. ASPIRIN [Concomitant]
     Active Substance: ASPIRIN
     Indication: Product used for unknown indication
     Dosage: 1 DOSAGE FORMS DAILY; 100 MG, 0-0-1-0, UNIT DOSE : 1 DF , FREQUENCY : OD
  5. Ascorbic Acid (Vitamin C)/Calcium [Concomitant]
     Indication: Product used for unknown indication
     Dosage: ON DIALYSIS-FREE DAYS
  6. BISOPROLOL [Concomitant]
     Active Substance: BISOPROLOL
     Indication: Product used for unknown indication
     Dosage: 2 DOSAGE FORMS DAILY; 5 MG, 1-0-1-0, UNIT DOSE : 1 DF , FREQUENCY : BD
  7. CANDESARTAN [Concomitant]
     Active Substance: CANDESARTAN
     Indication: Product used for unknown indication
     Dosage: 1 DOSAGE FORMS DAILY; 16 MG, 1-0-0-0, UNIT DOSE : 1 DF , FREQUENCY : OD
  8. DIHYDRALAZINE [Concomitant]
     Active Substance: DIHYDRALAZINE
     Indication: Product used for unknown indication
     Dosage: 25 MG, DEPENDING ON THE RR UP TO 4 TIMES A DAY
  9. MOXONIDINE [Concomitant]
     Active Substance: MOXONIDINE
     Indication: Product used for unknown indication
     Dosage: 1 DOSAGE FORMS DAILY; 0.3 MG, 0-0-1-0, UNIT DOSE : 1 DF , FREQUENCY : OD
  10. ZINC OXIDE [Concomitant]
     Active Substance: ZINC OXIDE
     Indication: Product used for unknown indication
     Dosage: TWO TO THREE TIMES A DAY
  11. ENOXAPARIN [Concomitant]
     Active Substance: ENOXAPARIN
     Indication: Product used for unknown indication
     Dosage: 1 DOSAGE FORMS DAILY; 8000 IE, 0-0-1-0, UNIT DOSE : 1 DF , FREQUENCY : OD
  12. OMEPRAZOLE [Concomitant]
     Active Substance: OMEPRAZOLE
     Indication: Product used for unknown indication
     Dosage: 2 DOSAGE FORMS DAILY; 40 MG, 1-0-1-0, UNIT DOSE : 1 DF , FREQUENCY : BD
  13. ACYCLOVIR [Concomitant]
     Active Substance: ACYCLOVIR
     Indication: Product used for unknown indication
     Dosage: 2 DOSAGE FORMS DAILY; 800 MG, 1-0-1-0, UNIT DOSE : 1 DF , FREQUENCY : BD
  14. CALCIUM CITRATE [Concomitant]
     Active Substance: CALCIUM CITRATE
     Indication: Product used for unknown indication
     Dosage: 950 MG, PAUSED
     Route: 065

REACTIONS (8)
  - Dizziness [Unknown]
  - Dysaesthesia [Unknown]
  - Herpes zoster [Unknown]
  - Nausea [Unknown]
  - Headache [Unknown]
  - Language disorder [Unknown]
  - Meningoencephalitis herpetic [Unknown]
  - Sepsis [Unknown]
